FAERS Safety Report 7213514-6 (Version None)
Quarter: 2011Q1

REPORT INFORMATION
  Report Type: 
  Country: None (occurrence: None)
  Receive Date: 20110106
  Receipt Date: 20101227
  Transmission Date: 20110831
  Serious: Yes (Hospitalization)
  Sender: FDA-Public Use
  Company Number: NL-MEDIMMUNE-MEDI-0011984

PATIENT
  Sex: Male
  Weight: 3.25 kg

DRUGS (3)
  1. ACETYLSALICYLATE CALCIUM [Concomitant]
     Dates: start: 20100101
  2. SYNAGIS [Suspect]
     Route: 030
     Dates: start: 20101111, end: 20101111
  3. SYNAGIS [Suspect]
     Indication: CARDIAC DISORDER
     Route: 030
     Dates: start: 20101207

REACTIONS (3)
  - RESPIRATORY TRACT INFECTION [None]
  - VIRAL INFECTION [None]
  - APNOEA [None]
